FAERS Safety Report 5345724-7 (Version None)
Quarter: 2007Q2

REPORT INFORMATION
  Report Type: 
  Country: None (occurrence: None)
  Receive Date: 20070601
  Receipt Date: 20070524
  Transmission Date: 20071010
  Serious: Yes (Hospitalization)
  Sender: FDA-Public Use
  Company Number: 2007SP007552

PATIENT
  Age: 40 Year
  Sex: Male
  Weight: 82.4 kg

DRUGS (1)
  1. TEMOZOLOMIDE [Suspect]
     Indication: MALIGNANT MELANOMA STAGE IV
     Dosage: 320 MG;
     Dates: start: 20051215, end: 20070416

REACTIONS (2)
  - ANAEMIA [None]
  - HYPERBILIRUBINAEMIA [None]
